FAERS Safety Report 21747170 (Version 1)
Quarter: 2022Q4

REPORT INFORMATION
  Report Type: Spontaneous
  Country: US (occurrence: None)
  Receive Date: 20221219
  Receipt Date: 20221219
  Transmission Date: 20230112
  Serious: Yes (Hospitalization, Other)
  Sender: FDA-Public Use
  Company Number: US-ALVOGEN-2022-ALVOGEN-120874

PATIENT

DRUGS (1)
  1. DEXAMETHASONE [Suspect]
     Active Substance: DEXAMETHASONE
     Indication: Product used for unknown indication

REACTIONS (24)
  - Infection [Unknown]
  - Neuropsychiatric symptoms [Unknown]
  - Respiratory distress [Unknown]
  - Depression [Unknown]
  - Embolism [Unknown]
  - Cardiac arrest [Unknown]
  - Pain [Unknown]
  - Insomnia [Unknown]
  - Dyspepsia [Unknown]
  - Oedema [Unknown]
  - Hiccups [Unknown]
  - Fatigue [Unknown]
  - Asthenia [Unknown]
  - Diarrhoea [Unknown]
  - Nausea [Unknown]
  - Hypertension [Unknown]
  - Hyperglycaemia [Unknown]
  - Anaemia [Unknown]
  - Stomatitis [Unknown]
  - Myocardial infarction [Unknown]
  - Dehydration [Unknown]
  - Fracture [Unknown]
  - Hypercalcaemia [Unknown]
  - Syncope [Unknown]
